FAERS Safety Report 4663866-6 (Version None)
Quarter: 2005Q2

REPORT INFORMATION
  Report Type: 
  Country: None (occurrence: None)
  Receive Date: 20050516
  Receipt Date: 20050505
  Transmission Date: 20051028
  Serious: Yes (Other)
  Sender: FDA-Public Use
  Company Number: 2005071236

PATIENT
  Sex: Female

DRUGS (5)
  1. PROCARDIA XL [Suspect]
     Indication: HYPERTENSION
     Dosage: 30 MG (30 MG; QD), ORAL
     Route: 048
  2. LANSOPRAZOLE [Concomitant]
  3. CELECOXIB (CELECOXIB) [Concomitant]
  4. ATENOLOL [Concomitant]
  5. ANASTROZOLE (ANASTROZOLE) [Concomitant]

REACTIONS (3)
  - BREAST CANCER FEMALE [None]
  - DIARRHOEA [None]
  - IRRITABLE BOWEL SYNDROME [None]
